FAERS Safety Report 12764589 (Version 2)
Quarter: 2016Q4

REPORT INFORMATION
  Report Type: Report from Study
  Country: US (occurrence: US)
  Receive Date: 20160920
  Receipt Date: 20161005
  Transmission Date: 20170207
  Serious: Yes (Other)
  Sender: FDA-Public Use
  Company Number: US-MYLANLABS-2016M1040066

PATIENT

DRUGS (4)
  1. CLOZAPINE. [Suspect]
     Active Substance: CLOZAPINE
     Indication: CRYING
  2. CLOZAPINE. [Suspect]
     Active Substance: CLOZAPINE
     Indication: ANXIETY
  3. CLOZAPINE. [Suspect]
     Active Substance: CLOZAPINE
     Indication: DEMENTIA
     Dosage: 25 MG, BID
     Route: 048
     Dates: start: 20150626
  4. CLOZAPINE. [Suspect]
     Active Substance: CLOZAPINE
     Indication: AGITATION

REACTIONS (2)
  - Drug dose omission [Unknown]
  - White blood cell count decreased [Unknown]
